FAERS Safety Report 9453095 (Version 2)
Quarter: 2013Q3

REPORT INFORMATION
  Report Type: Spontaneous
  Country: BR (occurrence: BR)
  Receive Date: 20130812
  Receipt Date: 20130822
  Transmission Date: 20140515
  Serious: No
  Sender: FDA-Public Use
  Company Number: BR-PFIZER INC-2013227751

PATIENT
  Sex: Female

DRUGS (3)
  1. DEPO-PROVERA [Suspect]
     Indication: CONTRACEPTION
  2. DEPO-PROVERA [Suspect]
     Indication: MENSTRUAL DISCOMFORT
  3. DEPO-PROVERA [Suspect]

REACTIONS (3)
  - Amenorrhoea [Recovered/Resolved]
  - Menorrhagia [Unknown]
  - Drug prescribing error [Unknown]
